FAERS Safety Report 8214136-0 (Version None)
Quarter: 2012Q1

REPORT INFORMATION
  Report Type: 
  Country: None (occurrence: None)
  Receive Date: 20120316
  Receipt Date: 20120308
  Transmission Date: 20120608
  Serious: Yes (Hospitalization)
  Sender: FDA-Public Use
  Company Number: US-BAYER-2012-010794

PATIENT
  Age: 21 Year
  Sex: Female
  Weight: 100 kg

DRUGS (7)
  1. HYDROCODONE BITARTRATE [Concomitant]
  2. YASMIN [Suspect]
     Dosage: UNK
     Dates: start: 20000101, end: 20081001
  3. MAXAIR [Concomitant]
     Dosage: UNK
     Dates: start: 20010101, end: 20110101
  4. OXYCODONE HCL [Concomitant]
  5. YAZ [Suspect]
     Dosage: UNK
     Dates: start: 20000101, end: 20081001
  6. DROSPIRENONE AND ETHINYL ESTRADIOL [Suspect]
     Dosage: UNK
     Dates: start: 20000101, end: 20081001
  7. IBUPROFEN [Concomitant]
     Dosage: UNK
     Dates: start: 19940101

REACTIONS (1)
  - PULMONARY EMBOLISM [None]
